FAERS Safety Report 6894169-7 (Version None)
Quarter: 2010Q3

REPORT INFORMATION
  Report Type: 
  Country: None (occurrence: None)
  Receive Date: 20100802
  Receipt Date: 20100726
  Transmission Date: 20110219
  Serious: Yes (Hospitalization)
  Sender: FDA-Public Use
  Company Number: JP-JNJFOC-20100708422

PATIENT
  Sex: Male
  Weight: 53 kg

DRUGS (20)
  1. ITRIZOLE [Suspect]
     Indication: PRODUCT USED FOR UNKNOWN INDICATION
     Route: 041
  2. ITRIZOLE [Suspect]
     Route: 041
  3. ITRACONAZOLE [Suspect]
     Indication: PRODUCT USED FOR UNKNOWN INDICATION
     Route: 048
  4. PREDNISOLONE [Concomitant]
     Indication: INTERSTITIAL LUNG DISEASE
     Route: 048
  5. REBAMIPIDE [Concomitant]
     Indication: PROPHYLAXIS
     Route: 048
  6. ASPENON [Concomitant]
     Indication: ARRHYTHMIA
     Route: 048
  7. NICORANDIL [Concomitant]
     Indication: ARRHYTHMIA
     Route: 048
  8. AZOSEMIDE [Concomitant]
     Indication: CARDIAC FAILURE CHRONIC
     Route: 048
  9. LANSOPRAZOLE [Concomitant]
     Indication: PROPHYLAXIS
     Route: 048
  10. CYCLOPHOSPHAMIDE [Concomitant]
     Indication: INTERSTITIAL LUNG DISEASE
     Route: 048
  11. WARFARIN POTASSIUM [Concomitant]
     Indication: MITRAL VALVE INCOMPETENCE
     Route: 048
  12. WARFARIN POTASSIUM [Concomitant]
     Route: 048
  13. WARFARIN POTASSIUM [Concomitant]
     Indication: AORTIC VALVE INCOMPETENCE
     Route: 048
  14. WARFARIN POTASSIUM [Concomitant]
     Route: 048
  15. MECOBALAMIN [Concomitant]
     Indication: PROPHYLAXIS
     Route: 048
  16. MAGNESIUM OXIDE [Concomitant]
     Indication: CONSTIPATION
     Route: 048
  17. URSO 250 [Concomitant]
     Indication: HEPATIC FUNCTION ABNORMAL
     Route: 048
  18. VESICARE [Concomitant]
     Indication: HYPERTONIC BLADDER
     Route: 048
  19. MEILAX [Concomitant]
     Indication: ANXIETY DISORDER
     Route: 048
  20. OMEGACIN [Concomitant]
     Indication: FEBRILE NEUTROPENIA
     Route: 042

REACTIONS (5)
  - BLOOD CREATININE INCREASED [None]
  - BLOOD LACTATE DEHYDROGENASE INCREASED [None]
  - BLOOD UREA INCREASED [None]
  - DECREASED APPETITE [None]
  - PYREXIA [None]
